FAERS Safety Report 4355190-6 (Version None)
Quarter: 2004Q2

REPORT INFORMATION
  Report Type: 
  Country: None (occurrence: None)
  Receive Date: 20040506
  Receipt Date: 20040421
  Transmission Date: 20050107
  Serious: Yes (Death)
  Sender: FDA-Public Use
  Company Number: 2004S1001166

PATIENT
  Age: 49 Year
  Sex: Female

DRUGS (6)
  1. CLOZAPINE [Suspect]
     Indication: SCHIZOPHRENIA
     Dosage: 25MG Q HS. ORAL
     Route: 048
     Dates: start: 20040105, end: 20040328
  2. FUROSEMIDE [Concomitant]
  3. POTASSIUM CHLORIDE [Concomitant]
  4. OLANZAPINE [Concomitant]
  5. ENALAPRIL MALEATE [Concomitant]
  6. GABAPENTIN [Concomitant]

REACTIONS (1)
  - DEATH [None]
